FAERS Safety Report 25102293 (Version 1)
Quarter: 2025Q1

REPORT INFORMATION
  Report Type: Report from Study
  Country: US (occurrence: US)
  Receive Date: 20250320
  Receipt Date: 20250320
  Transmission Date: 20250408
  Serious: Yes (Other)
  Sender: JOHNSON AND JOHNSON
  Company Number: US-JNJFOC-20250350233

PATIENT
  Age: 56 Year
  Sex: Female
  Weight: 95.71 kg

DRUGS (17)
  1. SIMPONI ARIA [Suspect]
     Active Substance: GOLIMUMAB
     Indication: Spondyloarthropathy
     Dosage: 12.5 MG/ML, 4 ML SDV(SINGLE DOSE VIAL), 0,4 AND THEN EVERY 8 WEEKS
     Route: 041
     Dates: start: 20180809
  2. SIMPONI ARIA [Suspect]
     Active Substance: GOLIMUMAB
     Dosage: 2 MG/KG MIXED IN 100ML 0.9% NACL, DOSE SMALLER THAN UNIT, 9MG WASTE, IV RATE: 200ML/HR
     Route: 041
     Dates: start: 20241230
  3. VITAMIN D3 [Concomitant]
     Active Substance: CHOLECALCIFEROL
     Dosage: ON HOLD FOR SUMMER
     Route: 048
  4. OMEPRAZOLE [Concomitant]
     Active Substance: OMEPRAZOLE
     Route: 048
  5. AMLODIPINE BESYLATE [Concomitant]
     Active Substance: AMLODIPINE BESYLATE
     Route: 048
  6. VITAMIN B12 [Concomitant]
     Active Substance: CYANOCOBALAMIN
     Route: 048
  7. POTASSIUM CHLORIDE [Concomitant]
     Active Substance: POTASSIUM CHLORIDE
     Dosage: CRYS ER
  8. PREDNISONE [Concomitant]
     Active Substance: PREDNISONE
     Route: 048
     Dates: start: 20180614, end: 20180704
  9. PREDNISONE [Concomitant]
     Active Substance: PREDNISONE
     Route: 048
     Dates: start: 20180705, end: 20180720
  10. PREDNISONE [Concomitant]
     Active Substance: PREDNISONE
     Route: 048
     Dates: start: 20180809, end: 20180825
  11. PREDNISONE [Concomitant]
     Active Substance: PREDNISONE
     Route: 048
     Dates: start: 20220624, end: 20220708
  12. ERGOCALCIFEROL [Concomitant]
     Active Substance: ERGOCALCIFEROL
     Dosage: FOR 12 WEEKS TOTAL
     Route: 048
     Dates: start: 20200330, end: 20200628
  13. MEDROL [Concomitant]
     Active Substance: METHYLPREDNISOLONE
     Route: 048
     Dates: start: 20171130, end: 20171205
  14. MEDROL [Concomitant]
     Active Substance: METHYLPREDNISOLONE
     Route: 048
     Dates: start: 20180802, end: 20180807
  15. MEDROL [Concomitant]
     Active Substance: METHYLPREDNISOLONE
     Route: 048
     Dates: start: 20180809, end: 20180809
  16. VITAMIN D [Concomitant]
     Active Substance: VITAMIN D NOS
     Route: 048
     Dates: start: 20181105, end: 20200330
  17. VITAMIN D [Concomitant]
     Active Substance: VITAMIN D NOS
     Dosage: FOR 12 WEEKS
     Route: 048
     Dates: start: 20131114, end: 20140130

REACTIONS (7)
  - Bone giant cell tumour [Unknown]
  - Nephrolithiasis [Recovering/Resolving]
  - Ankylosing spondylitis [Unknown]
  - Osteoarthritis [Not Recovered/Not Resolved]
  - Sciatica [Unknown]
  - Scoliosis [Unknown]
  - Intervertebral disc protrusion [Unknown]
